FAERS Safety Report 5572311-8 (Version None)
Quarter: 2007Q4

REPORT INFORMATION
  Report Type: 
  Country: None (occurrence: None)
  Receive Date: 20071221
  Receipt Date: 20071209
  Transmission Date: 20080405
  Serious: Yes (Other)
  Sender: FDA-Public Use
  Company Number: US-PFIZER INC-2007105364

PATIENT
  Sex: Female
  Weight: 81.818 kg

DRUGS (4)
  1. CHANTIX [Suspect]
     Indication: SMOKING CESSATION THERAPY
     Route: 048
  2. ATIVAN [Concomitant]
     Indication: ANXIETY
     Route: 048
  3. SINGULAIR [Concomitant]
     Route: 048
  4. ALBUTEROL [Concomitant]
     Indication: ASTHMA
     Route: 055

REACTIONS (3)
  - ASTHMA [None]
  - CHEST PAIN [None]
  - DYSPEPSIA [None]
